FAERS Safety Report 18894151 (Version 6)
Quarter: 2021Q4

REPORT INFORMATION
  Report Type: Report from Study
  Country: IN (occurrence: IN)
  Receive Date: 20210215
  Receipt Date: 20211118
  Transmission Date: 20220304
  Serious: Yes (Hospitalization)
  Sender: FDA-Public Use
  Company Number: NVSC2021IN017789

PATIENT
  Age: 56 Year
  Sex: Male

DRUGS (2)
  1. SACUBITRIL\VALSARTAN [Suspect]
     Active Substance: SACUBITRIL\VALSARTAN
     Indication: Cardiac failure chronic
     Dosage: 0.5 DF, BID (100 MG HALF BD)
     Route: 048
     Dates: start: 20210118
  2. SACUBITRIL\VALSARTAN [Suspect]
     Active Substance: SACUBITRIL\VALSARTAN
     Indication: Cardiac failure

REACTIONS (6)
  - Wound infection [Recovering/Resolving]
  - Oedema peripheral [Recovered/Resolved]
  - Hypotension [Recovered/Resolved]
  - Dyspnoea [Unknown]
  - Wrong technique in product usage process [Unknown]
  - Product prescribing error [Unknown]

NARRATIVE: CASE EVENT DATE: 20210118
